FAERS Safety Report 9690817 (Version 2)
Quarter: 2013Q4

REPORT INFORMATION
  Report Type: Spontaneous
  Country: JP (occurrence: JP)
  Receive Date: 20131115
  Receipt Date: 20131120
  Transmission Date: 20140711
  Serious: Yes (Hospitalization, Other)
  Sender: FDA-Public Use
  Company Number: JP-JNJFOC-20131102905

PATIENT
  Age: 40 Year
  Sex: Male

DRUGS (41)
  1. DUROTEP MT [Suspect]
     Indication: PAIN
     Route: 062
     Dates: start: 20110615
  2. DUROTEP MT [Suspect]
     Indication: PAIN
     Route: 062
     Dates: start: 20110520, end: 20110614
  3. METOCLOPRAMIDE HYDROCHLORIDE [Concomitant]
     Route: 042
     Dates: start: 20110617, end: 20110617
  4. NEO-MINOPHAGEN C [Concomitant]
     Route: 042
     Dates: start: 20110520, end: 20110527
  5. NEO-MINOPHAGEN C [Concomitant]
     Route: 042
     Dates: start: 20110603, end: 20110617
  6. LOXONIN [Concomitant]
     Route: 048
     Dates: start: 20110607, end: 20110623
  7. LOXONIN [Concomitant]
     Route: 048
     Dates: start: 20110520, end: 20110603
  8. MUCOSTA [Concomitant]
     Route: 048
     Dates: start: 20110520, end: 20110623
  9. PURSENNID [Concomitant]
     Route: 048
     Dates: start: 20110520, end: 20110623
  10. DEPAS [Concomitant]
     Route: 048
     Dates: start: 20110520, end: 20110623
  11. DEPAS [Concomitant]
     Route: 048
     Dates: start: 20110520, end: 20110623
  12. SILECE [Concomitant]
     Route: 048
     Dates: start: 20110520, end: 20110623
  13. CERCINE [Concomitant]
     Route: 048
     Dates: start: 20110520, end: 20110623
  14. CLARITIN [Concomitant]
     Route: 048
     Dates: start: 20110520, end: 20110623
  15. METHYCOBAL [Concomitant]
     Route: 048
     Dates: start: 20110520, end: 20110623
  16. JUVELA N [Concomitant]
     Route: 048
     Dates: start: 20110520, end: 20110623
  17. CHLORPHENIRAMINE MALEATE [Concomitant]
     Route: 042
     Dates: start: 20110603, end: 20110617
  18. CHLORPHENIRAMINE MALEATE [Concomitant]
     Route: 042
     Dates: start: 20110520, end: 20110527
  19. NICHIPHAGEN [Concomitant]
     Route: 048
     Dates: start: 20110520, end: 20110623
  20. INTEBAN [Concomitant]
     Route: 061
     Dates: start: 20110524, end: 20110524
  21. GASMOTIN [Concomitant]
     Route: 048
     Dates: start: 20110520, end: 20110623
  22. URSO [Concomitant]
     Route: 048
     Dates: start: 20110520, end: 20110623
  23. ACETATED RINGER^S SOLUTION WITH GLUCOSE [Concomitant]
     Route: 041
     Dates: start: 20110615, end: 20110615
  24. HEPARIN NA LOCK [Concomitant]
     Route: 042
     Dates: start: 20110520, end: 20110527
  25. HEPARIN NA LOCK [Concomitant]
     Route: 042
     Dates: start: 20110603, end: 20110617
  26. LAXOBERON [Concomitant]
     Route: 048
     Dates: start: 20110606, end: 20110606
  27. LENDORMIN D [Concomitant]
     Route: 048
     Dates: start: 20110614, end: 20110614
  28. LENDORMIN D [Concomitant]
     Route: 048
     Dates: start: 20110526, end: 20110526
  29. INDOMETHACIN [Concomitant]
     Dosage: PRN
     Route: 062
     Dates: start: 20110606, end: 20110606
  30. MOHRUS TAPE [Concomitant]
     Route: 062
     Dates: start: 20110609, end: 20110609
  31. MOHRUS TAPE [Concomitant]
     Route: 062
     Dates: start: 20110606, end: 20110606
  32. XYLOCAINE POLYAMP [Concomitant]
     Route: 042
     Dates: start: 20110609, end: 20110609
  33. ISOTONIC SODIUM CHLORIDE [Concomitant]
     Route: 042
     Dates: start: 20110609, end: 20110609
  34. SEISHOKU [Concomitant]
     Route: 042
     Dates: start: 20110610, end: 20110610
  35. MAGMITT [Concomitant]
     Route: 048
     Dates: start: 20110613, end: 20110716
  36. SANCOBA [Concomitant]
     Dosage: QUANTITY SUFFICIENT
     Route: 047
     Dates: start: 20110613, end: 20110613
  37. GASCON [Concomitant]
     Route: 048
     Dates: start: 20110615, end: 20110615
  38. NIFLEC [Concomitant]
     Route: 048
     Dates: start: 20110615, end: 20110615
  39. LAC-B [Concomitant]
     Route: 048
     Dates: start: 20110614, end: 20110716
  40. NOVAMIN [Concomitant]
     Route: 048
     Dates: start: 20110617, end: 20110716
  41. PROTECADIN [Concomitant]
     Route: 048
     Dates: start: 20110607, end: 20110623

REACTIONS (9)
  - Drug dependence [Unknown]
  - Pain [Unknown]
  - Drug prescribing error [Unknown]
  - Fatigue [Unknown]
  - Somnolence [Unknown]
  - Feeling abnormal [Unknown]
  - Diarrhoea [Unknown]
  - Malaise [Unknown]
  - Therapy naive [Unknown]
